FAERS Safety Report 16259404 (Version 1)
Quarter: 2019Q2

REPORT INFORMATION
  Report Type: Spontaneous
  Country: US (occurrence: US)
  Receive Date: 20190501
  Receipt Date: 20190501
  Transmission Date: 20190711
  Serious: No
  Sender: FDA-Public Use
  Company Number: US-SHIRE-US201914277

PATIENT
  Age: 76 Year
  Sex: Male

DRUGS (1)
  1. XIIDRA [Suspect]
     Active Substance: LIFITEGRAST
     Indication: DRY EYE
     Dosage: UNK
     Route: 047
     Dates: start: 201701

REACTIONS (4)
  - Vision blurred [Unknown]
  - Instillation site reaction [Unknown]
  - Lacrimation increased [Unknown]
  - Product packaging issue [Unknown]
